FAERS Safety Report 8099915-5 (Version None)
Quarter: 2012Q1

REPORT INFORMATION
  Report Type: 
  Country: None (occurrence: None)
  Receive Date: 20120129
  Receipt Date: 20111128
  Transmission Date: 20120608
  Serious: No
  Sender: FDA-Public Use
  Company Number: US-ABBOTT-11P-163-0878058-00

PATIENT
  Sex: Female

DRUGS (1)
  1. HUMIRA [Suspect]
     Indication: ACCIDENTAL EXPOSURE
     Dates: start: 20111127, end: 20111127

REACTIONS (2)
  - INJURY ASSOCIATED WITH DEVICE [None]
  - WRONG DRUG ADMINISTERED [None]
